FAERS Safety Report 10798029 (Version 2)
Quarter: 2017Q3

REPORT INFORMATION
  Report Type: Spontaneous
  Country: US (occurrence: US)
  Receive Date: 20150216
  Receipt Date: 20170821
  Transmission Date: 20171127
  Serious: No
  Sender: FDA-Public Use
  Company Number: US-PFIZER INC-2015055290

PATIENT
  Age: 25 Year
  Sex: Female

DRUGS (1)
  1. VFEND [Suspect]
     Active Substance: VORICONAZOLE
     Dosage: 200 MG, 2X/DAY
     Route: 048
     Dates: start: 201501

REACTIONS (3)
  - Nausea [Not Recovered/Not Resolved]
  - Abdominal pain upper [Not Recovered/Not Resolved]
  - Chest pain [Not Recovered/Not Resolved]

NARRATIVE: CASE EVENT DATE: 201501
